FAERS Safety Report 7243621-3 (Version None)
Quarter: 2011Q1

REPORT INFORMATION
  Report Type: 
  Country: None (occurrence: None)
  Receive Date: 20110125
  Receipt Date: 20110114
  Transmission Date: 20110831
  Serious: Yes (Hospitalization)
  Sender: FDA-Public Use
  Company Number: PHHY2011BR03511

PATIENT
  Sex: Male
  Weight: 51 kg

DRUGS (4)
  1. TEGRETOL [Suspect]
     Dosage: 1 DF, QD
     Route: 048
  2. DEPAKOTE [Concomitant]
     Dosage: 1 DF, QD
     Route: 048
  3. DEPAKOTE [Concomitant]
     Dosage: 1000 MG
  4. DEPAKOTE [Concomitant]
     Dosage: 250 MG

REACTIONS (1)
  - CEREBROVASCULAR ACCIDENT [None]
